FAERS Safety Report 8621616-2 (Version None)
Quarter: 2012Q3

REPORT INFORMATION
  Report Type: 
  Country: None (occurrence: None)
  Receive Date: 20120820
  Receipt Date: 20120820
  Transmission Date: 20120928
  Serious: Yes (Death, Hospitalization)
  Sender: FDA-Public Use
  Company Number: None

PATIENT
  Sex: Male
  Weight: 78.8 kg

DRUGS (1)
  1. CISPLATIN [Suspect]
     Dosage: 76 MG

REACTIONS (8)
  - MENTAL STATUS CHANGES [None]
  - URINARY TRACT INFECTION [None]
  - STENOTROPHOMONAS INFECTION [None]
  - ESCHERICHIA URINARY TRACT INFECTION [None]
  - URINARY TRACT INFECTION PSEUDOMONAL [None]
  - CONVULSION [None]
  - PNEUMONIA [None]
  - LETHARGY [None]
